FAERS Safety Report 5256248-X (Version None)
Quarter: 2007Q1

REPORT INFORMATION
  Report Type: 
  Country: None (occurrence: None)
  Receive Date: 20070301
  Receipt Date: 20070221
  Transmission Date: 20070707
  Serious: Yes (Hospitalization)
  Sender: FDA-Public Use
  Company Number: 231106K07USA

PATIENT
  Age: 59 Year
  Sex: Female

DRUGS (12)
  1. REBIF [Suspect]
     Indication: MULTIPLE SCLEROSIS
     Dates: start: 20060101, end: 20070120
  2. REBIF [Suspect]
     Indication: MULTIPLE SCLEROSIS
     Dates: start: 20070212
  3. ATENOLOL [Suspect]
     Dates: end: 20070101
  4. WARFARIN (WARFARIN /00014801/) [Concomitant]
  5. DITROPAN XL (OXYBUTYNIN /00538901/) [Concomitant]
  6. TIZANIDINE HCL [Concomitant]
  7. CALTRATE PLUS VITAMIN  D WITH MINERALS (CATRATE PLUS) [Concomitant]
  8. CENTRUM SILVER THEAPEUTIC MULTIPLE VITAMINS WITH MINERALS (CENTRUM SIL [Concomitant]
  9. FLONASE [Concomitant]
  10. FOSAMAX [Concomitant]
  11. IMITREX [Concomitant]
  12. ZETIA [Concomitant]

REACTIONS (2)
  - ATRIOVENTRICULAR BLOCK COMPLETE [None]
  - HYPERTENSION [None]
